FAERS Safety Report 5225011-8 (Version None)
Quarter: 2007Q1

REPORT INFORMATION
  Report Type: 
  Country: None (occurrence: None)
  Receive Date: 20070126
  Receipt Date: 20070119
  Transmission Date: 20070707
  Serious: Yes (Life-Threatening, Other)
  Sender: FDA-Public Use
  Company Number: 2006S1000215

PATIENT
  Age: 5 Day
  Sex: Male

DRUGS (10)
  1. NITRIC OXIDE [Suspect]
     Indication: LUNG DISORDER
     Dosage: 5 PPM; CONT; INH
     Route: 055
     Dates: start: 20061019, end: 20061108
  2. NITRIC OXIDE [Suspect]
     Indication: PROPHYLAXIS
     Dosage: 5 PPM; CONT; INH
     Route: 055
     Dates: start: 20061019, end: 20061108
  3. THEOPHYLLINE [Concomitant]
  4. MORPHINE [Concomitant]
  5. CEFOTAXIME SODIUM [Concomitant]
  6. AMIKACIN [Concomitant]
  7. METRONIDAZOLE [Concomitant]
  8. FENTANYL [Concomitant]
  9. AMPICILLIN [Concomitant]
  10. GENTAMICIN [Concomitant]

REACTIONS (3)
  - INTESTINAL OBSTRUCTION [None]
  - INTESTINAL PERFORATION [None]
  - PATENT DUCTUS ARTERIOSUS [None]
